FAERS Safety Report 8583013-8 (Version None)
Quarter: 2012Q3

REPORT INFORMATION
  Report Type: 
  Country: None (occurrence: None)
  Receive Date: 20120809
  Receipt Date: 20120727
  Transmission Date: 20120928
  Serious: Yes (Hospitalization, Other)
  Sender: FDA-Public Use
  Company Number: US-ELI_LILLY_AND_COMPANY-US201207009256

PATIENT
  Sex: Male

DRUGS (1)
  1. HUMULIN 70/30 [Suspect]
     Indication: DIABETES MELLITUS
     Dosage: 20 U, BID
     Dates: start: 20120706

REACTIONS (5)
  - DRUG DOSE OMISSION [None]
  - LEUKAEMIA [None]
  - BLOOD GLUCOSE INCREASED [None]
  - HYPOACUSIS [None]
  - BLOOD GLUCOSE DECREASED [None]
